FAERS Safety Report 5875962-6 (Version None)
Quarter: 2008Q3

REPORT INFORMATION
  Report Type: 
  Country: None (occurrence: None)
  Receive Date: 20080908
  Receipt Date: 20080908
  Transmission Date: 20090109
  Serious: Yes (Other)
  Sender: FDA-Public Use
  Company Number: None

PATIENT
  Age: 58 Year
  Sex: Female
  Weight: 57.6068 kg

DRUGS (2)
  1. MIRTAZAPINE [Suspect]
     Indication: DEPRESSION
     Dosage: ONE OR TWO NIGHTLY PO
     Route: 048
     Dates: start: 20020120, end: 20080825
  2. MIRTAZAPINE [Suspect]
     Indication: INSOMNIA
     Dosage: ONE OR TWO NIGHTLY PO
     Route: 048
     Dates: start: 20020120, end: 20080825

REACTIONS (2)
  - PHARMACEUTICAL PRODUCT COMPLAINT [None]
  - URTICARIA [None]
